FAERS Safety Report 5159815-7 (Version None)
Quarter: 2006Q4

REPORT INFORMATION
  Report Type: 
  Country: None (occurrence: None)
  Receive Date: 20061129
  Receipt Date: 20060116
  Transmission Date: 20070319
  Serious: No
  Sender: FDA-Public Use
  Company Number: US-GLAXOSMITHKLINE-A0589421A

PATIENT
  Age: 52 Year
  Sex: Female

DRUGS (6)
  1. WELLBUTRIN SR [Suspect]
     Indication: DEPRESSION
     Dosage: 150MG PER DAY
     Route: 048
     Dates: start: 20060111
  2. PREMARIN [Concomitant]
  3. REQUIP [Concomitant]
  4. VICODIN [Concomitant]
  5. PROTONIX [Concomitant]
  6. EFFEXOR [Concomitant]

REACTIONS (3)
  - AGITATION [None]
  - TENSION [None]
  - TREMOR [None]
